FAERS Safety Report 5693995-X (Version None)
Quarter: 2008Q2

REPORT INFORMATION
  Report Type: 
  Country: None (occurrence: None)
  Receive Date: 20080403
  Receipt Date: 20080325
  Transmission Date: 20081010
  Serious: No
  Sender: FDA-Public Use
  Company Number: US-BAXTER-2008BH002822

PATIENT
  Age: 41 Year
  Sex: Female
  Weight: 165 kg

DRUGS (11)
  1. SUPRANE [Suspect]
     Indication: ANAESTHESIA
     Dosage: DOSE UNIT:UNKNOWN
     Route: 065
  2. NEOSTIGMINE [Suspect]
     Indication: NEUROMUSCULAR BLOCKADE REVERSAL
     Dosage: DOSE UNIT:UNKNOWN
     Route: 065
  3. DROPERIDOL [Suspect]
     Indication: DRUG USE FOR UNKNOWN INDICATION
     Dosage: DOSE UNIT:UNKNOWN
     Route: 065
  4. DOLASETRON [Suspect]
     Indication: DRUG USE FOR UNKNOWN INDICATION
     Dosage: DOSE UNIT:UNKNOWN
     Route: 065
  5. DEXMEDETOMIDINE [Suspect]
     Indication: DRUG USE FOR UNKNOWN INDICATION
     Dosage: DOSE UNIT:UNKNOWN
     Route: 065
  6. PHENTERMINE [Concomitant]
     Indication: WEIGHT DECREASED
     Dosage: DOSE UNIT:UNKNOWN
     Route: 065
  7. FUROSEMIDE [Concomitant]
     Indication: OEDEMA PERIPHERAL
     Dosage: DOSE UNIT:UNKNOWN
     Route: 065
  8. PROPOFOL [Concomitant]
     Indication: DRUG USE FOR UNKNOWN INDICATION
     Route: 065
  9. LIDOCAINE [Concomitant]
     Indication: DRUG USE FOR UNKNOWN INDICATION
     Route: 065
  10. SUCCINYLCHOLINE CHLORIDE [Concomitant]
     Indication: DRUG USE FOR UNKNOWN INDICATION
     Route: 065
  11. VECURONIUM BROMIDE [Concomitant]
     Indication: DRUG USE FOR UNKNOWN INDICATION
     Route: 065

REACTIONS (2)
  - ATRIOVENTRICULAR BLOCK SECOND DEGREE [None]
  - ELECTROCARDIOGRAM QT PROLONGED [None]
